FAERS Safety Report 12918809 (Version 5)
Quarter: 2018Q1

REPORT INFORMATION
  Report Type: Report from Study
  Country: US (occurrence: US)
  Receive Date: 20161108
  Receipt Date: 20180208
  Transmission Date: 20180508
  Serious: No
  Sender: FDA-Public Use
  Company Number: US-009507513-1611USA002064

PATIENT
  Age: 58 Year
  Sex: Male

DRUGS (1)
  1. PEMBROLIZUMAB. [Suspect]
     Active Substance: PEMBROLIZUMAB
     Indication: MALIGNANT MELANOMA
     Dosage: UNK, EVERY 3 WEEKS
     Route: 042

REACTIONS (16)
  - Blood pressure increased [Unknown]
  - Pain [Recovering/Resolving]
  - Malaise [Unknown]
  - Adrenocorticotropic hormone deficiency [Unknown]
  - Muscular weakness [Unknown]
  - Weight decreased [Unknown]
  - Nasopharyngitis [Unknown]
  - Cortisol decreased [Unknown]
  - Vomiting [Unknown]
  - Arthralgia [Unknown]
  - Weight increased [Unknown]
  - Influenza [Recovering/Resolving]
  - Increased appetite [Unknown]
  - Memory impairment [Unknown]
  - Fatigue [Unknown]
  - Nausea [Recovering/Resolving]

NARRATIVE: CASE EVENT DATE: 20160815
